FAERS Safety Report 18964300 (Version 2)
Quarter: 2023Q1

REPORT INFORMATION
  Report Type: Spontaneous
  Country: US (occurrence: US)
  Receive Date: 20210303
  Receipt Date: 20230307
  Transmission Date: 20230418
  Serious: No
  Sender: FDA-Public Use
  Company Number: US-AMNEAL PHARMACEUTICALS-2020-AMRX-02754

PATIENT
  Age: 77 Year
  Sex: Female
  Weight: 112.04 kg

DRUGS (1)
  1. RYTARY [Suspect]
     Active Substance: CARBIDOPA\LEVODOPA
     Indication: Parkinson^s disease
     Dosage: 1 CAPSULES(36.25/145MG), 4 /DAY
     Route: 048

REACTIONS (3)
  - Weight decreased [Unknown]
  - Hypoacusis [Unknown]
  - Balance disorder [Unknown]

NARRATIVE: CASE EVENT DATE: 20200904
